FAERS Safety Report 18639802 (Version 3)
Quarter: 2021Q1

REPORT INFORMATION
  Report Type: Spontaneous
  Country: US (occurrence: US)
  Receive Date: 20201220
  Receipt Date: 20210223
  Transmission Date: 20210419
  Serious: No
  Sender: FDA-Public Use
  Company Number: US-GLAXOSMITHKLINE-US2020245585

PATIENT
  Sex: Male

DRUGS (1)
  1. BREO ELLIPTA [Suspect]
     Active Substance: FLUTICASONE FUROATE\VILANTEROL TRIFENATATE
     Indication: PRODUCT USED FOR UNKNOWN INDICATION
     Dosage: 1 PUFF(S), QD, 200/25 UG
     Route: 055

REACTIONS (6)
  - Swelling [Unknown]
  - Erythema [Unknown]
  - Burning sensation [Unknown]
  - Feeling hot [Unknown]
  - Pruritus [Unknown]
  - Product complaint [Unknown]
